FAERS Safety Report 20058158 (Version 1)
Quarter: 2021Q4

REPORT INFORMATION
  Report Type: Spontaneous
  Country: US (occurrence: US)
  Receive Date: 20211111
  Receipt Date: 20211111
  Transmission Date: 20220303
  Serious: Yes (Other)
  Sender: FDA-Public Use
  Company Number: US-ELI_LILLY_AND_COMPANY-US202111002531

PATIENT
  Age: 53 Year
  Sex: Female

DRUGS (2)
  1. ETESEVIMAB [Suspect]
     Active Substance: ETESEVIMAB
     Indication: COVID-19
     Dosage: 700 MG, SINGLE
     Route: 042
     Dates: start: 20211018, end: 20211018
  2. BAMLANIVIMAB [Suspect]
     Active Substance: BAMLANIVIMAB
     Indication: COVID-19
     Dosage: 700 MG, SINGLE
     Route: 042
     Dates: start: 20211018, end: 20211018

REACTIONS (6)
  - Infusion related reaction [Unknown]
  - Dyspnoea [Unknown]
  - Nausea [Unknown]
  - Blood pressure decreased [Unknown]
  - Flushing [Unknown]
  - Underdose [Unknown]

NARRATIVE: CASE EVENT DATE: 20211018
